FAERS Safety Report 8413717-9 (Version None)
Quarter: 2012Q2

REPORT INFORMATION
  Report Type: 
  Country: None (occurrence: None)
  Receive Date: 20120605
  Receipt Date: 20120528
  Transmission Date: 20120825
  Serious: Yes (Other)
  Sender: FDA-Public Use
  Company Number: JP-PFIZER INC-2012111596

PATIENT
  Age: 54 Year
  Sex: Female

DRUGS (16)
  1. NITRAZEPAM [Concomitant]
  2. FUROSEMIDE [Concomitant]
  3. MAGMITT [Concomitant]
  4. LOXONIN [Concomitant]
  5. MUCOSTA [Concomitant]
  6. LEVOTOMIN [Concomitant]
  7. ARTZ [Concomitant]
  8. PALIPERIDONE [Concomitant]
  9. DEPAKENE [Concomitant]
  10. DAIOKANZOTO [Concomitant]
  11. FLUNITRAZEPAM [Concomitant]
  12. LYRICA [Suspect]
     Indication: ARTHRALGIA
     Dosage: 150 MG DAILY
     Route: 048
     Dates: start: 20120204, end: 20120227
  13. LYRICA [Suspect]
     Dosage: 300 MG DAILY
     Dates: start: 20120228, end: 20120513
  14. PRAVASTATIN SODIUM [Concomitant]
  15. BICAMOL [Concomitant]
  16. XYLOCAINE [Concomitant]

REACTIONS (4)
  - OEDEMA PERIPHERAL [None]
  - BLOOD PRESSURE INCREASED [None]
  - PERIOSTITIS [None]
  - BLOOD CREATINE PHOSPHOKINASE INCREASED [None]
